FAERS Safety Report 7792790-5 (Version None)
Quarter: 2011Q4

REPORT INFORMATION
  Report Type: 
  Country: None (occurrence: None)
  Receive Date: 20111003
  Receipt Date: 20110928
  Transmission Date: 20120403
  Serious: Yes (Other)
  Sender: FDA-Public Use
  Company Number: US-GLAXOSMITHKLINE-A0840375A

PATIENT
  Age: 62 Year
  Sex: Male

DRUGS (1)
  1. AVANDIA [Suspect]
     Indication: TYPE 2 DIABETES MELLITUS
     Dosage: 4MG PER DAY
     Route: 048
     Dates: start: 20030101, end: 20040101

REACTIONS (6)
  - FATIGUE [None]
  - PULMONARY OEDEMA [None]
  - DYSPNOEA [None]
  - CARDIOMEGALY [None]
  - DEPRESSION [None]
  - CARDIAC FAILURE CONGESTIVE [None]
